FAERS Safety Report 4602238-7 (Version None)
Quarter: 2005Q1

REPORT INFORMATION
  Report Type: 
  Country: None (occurrence: None)
  Receive Date: 20050201
  Receipt Date: 20040729
  Transmission Date: 20050727
  Serious: Yes (Life-Threatening, Other)
  Sender: FDA-Public Use
  Company Number: 200419987BWH

PATIENT
  Age: 48 Year
  Sex: Male

DRUGS (4)
  1. AVELOX [Suspect]
     Indication: BRONCHITIS
     Dosage: 400 MG, ONCE, ORAL
     Route: 048
     Dates: start: 20031202
  2. TYLENOL (CAPLET) [Concomitant]
  3. ASPIRIN [Concomitant]
  4. ROBITUSSIN [Concomitant]

REACTIONS (14)
  - ANAPHYLACTIC SHOCK [None]
  - ANXIETY [None]
  - BLOOD PRESSURE DECREASED [None]
  - DIZZINESS [None]
  - DYSPNOEA [None]
  - HYPERHIDROSIS [None]
  - HYPERSENSITIVITY [None]
  - NAUSEA [None]
  - PRURITUS [None]
  - RASH GENERALISED [None]
  - SHOCK [None]
  - TACHYCARDIA [None]
  - TREMOR [None]
  - VOMITING [None]
